FAERS Safety Report 7800933-X (Version None)
Quarter: 2011Q4

REPORT INFORMATION
  Report Type: 
  Country: None (occurrence: None)
  Receive Date: 20111006
  Receipt Date: 20111003
  Transmission Date: 20120403
  Serious: Yes (Hospitalization)
  Sender: FDA-Public Use
  Company Number: CA-ABBOTT-11P-028-0859290-00

PATIENT
  Sex: Male

DRUGS (4)
  1. UNKNOWN PSYCHIATRIC MEDICATION [Concomitant]
     Indication: PRODUCT USED FOR UNKNOWN INDICATION
  2. AZITHROMYCIN [Concomitant]
     Indication: PHARYNGITIS
     Dates: start: 20110909
  3. HUMIRA [Suspect]
     Dates: start: 20110929
  4. HUMIRA [Suspect]
     Indication: CROHN'S DISEASE
     Route: 058
     Dates: start: 20110325

REACTIONS (5)
  - AGGRESSION [None]
  - ANAL ABSCESS [None]
  - DIARRHOEA [None]
  - HOSPITALISATION [None]
  - RECTAL HAEMORRHAGE [None]
